FAERS Safety Report 24162362 (Version 1)
Quarter: 2024Q3

REPORT INFORMATION
  Report Type: Spontaneous
  Country: US (occurrence: None)
  Receive Date: 20240731
  Receipt Date: 20240731
  Transmission Date: 20241017
  Serious: Yes (Death)
  Sender: Public
  Company Number: None

PATIENT
  Sex: Female

DRUGS (5)
  1. CAPECITABINE [Suspect]
     Active Substance: CAPECITABINE
  2. PROMACTA [Suspect]
     Active Substance: ELTROMBOPAG OLAMINE
  3. ENHERTU [Concomitant]
     Active Substance: FAM-TRASTUZUMAB DERUXTECAN-NXKI
  4. VITAMIN D3 [Concomitant]
  5. IRON [Concomitant]
     Active Substance: IRON

REACTIONS (1)
  - Death [None]

NARRATIVE: CASE EVENT DATE: 20240728
